FAERS Safety Report 10236931 (Version 2)
Quarter: 2014Q3

REPORT INFORMATION
  Report Type: Report from Study
  Country: US (occurrence: US)
  Receive Date: 20140613
  Receipt Date: 20140722
  Transmission Date: 20150326
  Serious: Yes (Other)
  Sender: FDA-Public Use
  Company Number: PHEH2014US011794

PATIENT
  Age: 52 Year
  Sex: Female
  Weight: 90.7 kg

DRUGS (6)
  1. LEVETIRACETAM. [Concomitant]
     Active Substance: LEVETIRACETAM
     Dosage: 500 MG, BID
     Route: 048
  2. GILENYA [Suspect]
     Active Substance: FINGOLIMOD HYDROCHLORIDE
     Indication: MULTIPLE SCLEROSIS
     Dosage: 0.5 MG, QD
     Route: 048
     Dates: start: 2011
  3. ADDERALL [Concomitant]
     Active Substance: AMPHETAMINE ASPARTATE\AMPHETAMINE SULFATE\DEXTROAMPHETAMINE SACCHARATE\DEXTROAMPHETAMINE SULFATE
     Dosage: 20 MG, BID
     Route: 048
  4. CYMBALTA [Concomitant]
     Active Substance: DULOXETINE HYDROCHLORIDE
     Dosage: 60 MG, QD
     Route: 048
  5. LYRICA [Concomitant]
     Active Substance: PREGABALIN
     Dosage: 150 MG, BID
  6. PROPRANOLOL [Concomitant]
     Active Substance: PROPRANOLOL\PROPRANOLOL HYDROCHLORIDE
     Dosage: 60 MG, QD
     Route: 048

REACTIONS (20)
  - Carpal tunnel syndrome [Unknown]
  - Pain [Unknown]
  - Depressed mood [Unknown]
  - Headache [Unknown]
  - Neck pain [Unknown]
  - Decreased appetite [Unknown]
  - Paraesthesia [Unknown]
  - Hypokinesia [Unknown]
  - Vision blurred [Recovered/Resolved]
  - Fatigue [Unknown]
  - Arthralgia [Unknown]
  - Asthenia [Recovered/Resolved]
  - Visual acuity reduced [Unknown]
  - Eye pain [Unknown]
  - Anxiety [Unknown]
  - Back pain [Unknown]
  - Central nervous system lesion [Unknown]
  - Hypoaesthesia [Unknown]
  - Myalgia [Unknown]
  - Insomnia [Unknown]

NARRATIVE: CASE EVENT DATE: 20140213
